FAERS Safety Report 4984520-7 (Version None)
Quarter: 2006Q2

REPORT INFORMATION
  Report Type: 
  Country: None (occurrence: None)
  Receive Date: 20060420
  Receipt Date: 20060407
  Transmission Date: 20061013
  Serious: Yes (Other)
  Sender: FDA-Public Use
  Company Number: 805#9#2006-00037

PATIENT
  Age: 33 Day
  Sex: Male

DRUGS (7)
  1. ALPROSTADIL [Suspect]
     Indication: HEART DISEASE CONGENITAL
     Dosage: SEE IMAGE
     Route: 041
     Dates: start: 20051121, end: 20051121
  2. ALPROSTADIL [Suspect]
     Indication: HEART DISEASE CONGENITAL
     Dosage: SEE IMAGE
     Route: 041
     Dates: start: 20051121, end: 20051122
  3. ALPROSTADIL [Suspect]
     Indication: HEART DISEASE CONGENITAL
     Dosage: SEE IMAGE
     Route: 041
     Dates: start: 20051122, end: 20051123
  4. ALPROSTADIL [Suspect]
     Indication: HEART DISEASE CONGENITAL
     Dosage: SEE IMAGE
     Route: 041
     Dates: start: 20051123, end: 20051124
  5. MIDAZOLAM HCL, (MIDAZOLAM HCL) [Concomitant]
  6. SULBACTAM SODIUM/ AMPICILLIN SODIUM (AMPICILLIN SODIUM, SULBACTAM SODI [Concomitant]
  7. AMIKACIN SULFATE [Concomitant]

REACTIONS (3)
  - APNOEIC ATTACK [None]
  - C-REACTIVE PROTEIN INCREASED [None]
  - DIARRHOEA [None]
